FAERS Safety Report 22270426 (Version 1)
Quarter: 2023Q2

REPORT INFORMATION
  Report Type: Spontaneous
  Country: FR (occurrence: FR)
  Receive Date: 20230501
  Receipt Date: 20230501
  Transmission Date: 20230721
  Serious: Yes (Other)
  Sender: FDA-Public Use
  Company Number: FR-MYLANLABS-2023M1045293

PATIENT
  Age: 80 Year
  Sex: Female

DRUGS (1)
  1. ZOLEDRONIC ACID [Suspect]
     Active Substance: ZOLEDRONIC ACID
     Indication: Spinal cord compression
     Dosage: 5 MILLIGRAM, QD (ONCE)
     Route: 042
     Dates: start: 20230411, end: 20230411

REACTIONS (17)
  - Deafness unilateral [Not Recovered/Not Resolved]
  - Loss of consciousness [Unknown]
  - Blood pressure decreased [Unknown]
  - Malaise [Unknown]
  - Cardiac murmur [Unknown]
  - Brain fog [Unknown]
  - Peripheral swelling [Unknown]
  - Dysstasia [Unknown]
  - Chills [Unknown]
  - Back pain [Unknown]
  - Headache [Unknown]
  - Arthralgia [Not Recovered/Not Resolved]
  - Dizziness [Not Recovered/Not Resolved]
  - Joint swelling [Unknown]
  - Nausea [Unknown]
  - Asthenia [Not Recovered/Not Resolved]
  - Off label use [Unknown]

NARRATIVE: CASE EVENT DATE: 20230411
